FAERS Safety Report 9030826 (Version 1)
Quarter: 2013Q1

REPORT INFORMATION
  Report Type: Spontaneous
  Country: GB (occurrence: GB)
  Receive Date: 20130123
  Receipt Date: 20130123
  Transmission Date: 20140127
  Serious: Yes (Other)
  Sender: FDA-Public Use
  Company Number: GB-ROCHE-1181418

PATIENT
  Age: 37 Year
  Sex: Male

DRUGS (3)
  1. AVASTIN [Suspect]
     Indication: BRAIN NEOPLASM
     Route: 065
  2. TRINOTECAN [Suspect]
     Indication: PRODUCT USED FOR UNKNOWN INDICATION
     Route: 065
  3. LOMUSTINE [Suspect]
     Indication: PRODUCT USED FOR UNKNOWN INDICATION
     Route: 065

REACTIONS (3)
  - Agitation [Unknown]
  - Gait disturbance [Unknown]
  - Incontinence [Unknown]
